FAERS Safety Report 15577525 (Version 1)
Quarter: 2018Q4

REPORT INFORMATION
  Report Type: Spontaneous
  Country: US (occurrence: US)
  Receive Date: 20181102
  Receipt Date: 20181102
  Transmission Date: 20190205
  Serious: No
  Sender: FDA-Public Use
  Company Number: US-009507513-1810USA003164

PATIENT
  Age: 79 Year
  Sex: Male

DRUGS (20)
  1. JANUVIA [Suspect]
     Active Substance: SITAGLIPTIN PHOSPHATE
     Indication: DIABETES MELLITUS
     Dosage: 100 MG, UNK
     Route: 048
     Dates: start: 201806
  2. XARELTO [Concomitant]
     Active Substance: RIVAROXABAN
  3. DILTIAZEM CD [Concomitant]
     Active Substance: DILTIAZEM
  4. VITAMINS (UNSPECIFIED) [Concomitant]
     Active Substance: VITAMINS
  5. PRILOSEC [Concomitant]
     Active Substance: OMEPRAZOLE MAGNESIUM
  6. FERROUS SULFATE. [Concomitant]
     Active Substance: FERROUS SULFATE
  7. NAMENDA [Concomitant]
     Active Substance: MEMANTINE HYDROCHLORIDE
  8. PRAVASTATIN. [Concomitant]
     Active Substance: PRAVASTATIN
  9. BUDESONIDE. [Concomitant]
     Active Substance: BUDESONIDE
  10. ASCORBIC ACID. [Concomitant]
     Active Substance: ASCORBIC ACID
  11. MIRAPEX [Concomitant]
     Active Substance: PRAMIPEXOLE DIHYDROCHLORIDE
  12. KLOR-CON [Concomitant]
     Active Substance: POTASSIUM CHLORIDE
  13. SISU SUPER B COMPLEX [Concomitant]
  14. DETROL [Concomitant]
     Active Substance: TOLTERODINE TARTRATE
  15. METOPROLOL TARTRATE. [Concomitant]
     Active Substance: METOPROLOL TARTRATE
  16. BREO ELLIPTA [Concomitant]
     Active Substance: FLUTICASONE FUROATE\VILANTEROL TRIFENATATE
  17. IRBESARTAN. [Concomitant]
     Active Substance: IRBESARTAN
  18. FINASTERIDE. [Concomitant]
     Active Substance: FINASTERIDE
  19. JANUVIA [Suspect]
     Active Substance: SITAGLIPTIN PHOSPHATE
     Dosage: UNK
  20. LASIX [Concomitant]
     Active Substance: FUROSEMIDE

REACTIONS (2)
  - Product quality issue [Unknown]
  - Product residue present [Recovered/Resolved]

NARRATIVE: CASE EVENT DATE: 20181003
